FAERS Safety Report 5377992-X (Version None)
Quarter: 2007Q2

REPORT INFORMATION
  Report Type: 
  Country: None (occurrence: None)
  Receive Date: 20070629
  Receipt Date: 20070619
  Transmission Date: 20071010
  Serious: Yes (Death)
  Sender: FDA-Public Use
  Company Number: 127

PATIENT
  Sex: Female
  Weight: 85.2762 kg

DRUGS (2)
  1. FAZACLO 100MG ODT AVANIR PHARMACEUTICALS [Suspect]
     Indication: SCHIZOPHRENIA
     Dosage: 300MG PO DAILY
     Route: 048
     Dates: start: 20061227, end: 20070413
  2. ZOLOFT [Concomitant]

REACTIONS (1)
  - MYOCARDIAL INFARCTION [None]
